FAERS Safety Report 16255628 (Version 1)
Quarter: 2019Q2

REPORT INFORMATION
  Report Type: Spontaneous
  Country: ES (occurrence: ES)
  Receive Date: 20190430
  Receipt Date: 20190430
  Transmission Date: 20190711
  Serious: Yes (Other)
  Sender: FDA-Public Use
  Company Number: ES-MYLANLABS-2019M1039893

PATIENT
  Age: 72 Year
  Sex: Male

DRUGS (3)
  1. VENTOLIN [Suspect]
     Active Substance: ALBUTEROL SULFATE
     Indication: BRONCHITIS
     Dosage: 2 DOSAGE FORM, Q8H
     Route: 055
     Dates: start: 20181102
  2. AMOXICILINA SANDOZ [Suspect]
     Active Substance: AMOXICILLIN
     Indication: BRONCHITIS
     Dosage: 750 MILLIGRAM, Q8H
     Route: 048
     Dates: start: 20181102, end: 20181103
  3. ACETYLCYSTEINE. [Suspect]
     Active Substance: ACETYLCYSTEINE
     Indication: BRONCHITIS
     Dosage: 600 MILLIGRAM, QD
     Route: 048
     Dates: start: 20181102

REACTIONS (3)
  - Lip oedema [Unknown]
  - Face oedema [Unknown]
  - Tongue oedema [Unknown]

NARRATIVE: CASE EVENT DATE: 20181104
